FAERS Safety Report 12075559 (Version 2)
Quarter: 2016Q1

REPORT INFORMATION
  Report Type: Spontaneous
  Country: FR (occurrence: FR)
  Receive Date: 20160213
  Receipt Date: 20160218
  Transmission Date: 20160526
  Serious: Yes (Hospitalization)
  Sender: FDA-Public Use
  Company Number: FR-009507513-1602FRA005479

PATIENT
  Age: 60 Year
  Sex: Female

DRUGS (18)
  1. BRIDION [Suspect]
     Active Substance: SUGAMMADEX
     Dosage: UNK
     Route: 042
     Dates: start: 20151222, end: 20151222
  2. PROPOFOL FRESENIUS [Suspect]
     Active Substance: PROPOFOL
     Dosage: UNK
     Route: 042
     Dates: start: 20151222, end: 20151222
  3. EXACYL [Concomitant]
     Active Substance: TRANEXAMIC ACID
  4. MORPHINE SULFATE. [Suspect]
     Active Substance: MORPHINE SULFATE
     Dosage: UNK
     Route: 042
     Dates: start: 20151223, end: 20151223
  5. INEXIUM (ESOMEPRAZOLE MAGNESIUM) [Concomitant]
     Active Substance: ESOMEPRAZOLE MAGNESIUM
  6. ACUPAN [Suspect]
     Active Substance: NEFOPAM HYDROCHLORIDE
     Dosage: UNK
     Route: 042
     Dates: start: 20151222, end: 20151223
  7. DEXAMETHASONE. [Concomitant]
     Active Substance: DEXAMETHASONE
  8. LYRICA [Concomitant]
     Active Substance: PREGABALIN
  9. CYMBALTA [Concomitant]
     Active Substance: DULOXETINE HYDROCHLORIDE
  10. SERESTA [Concomitant]
     Active Substance: OXAZEPAM
  11. ESMERON [Suspect]
     Active Substance: ROCURONIUM BROMIDE
     Dosage: UNK
     Route: 042
     Dates: start: 20151222, end: 20151222
  12. DROPERIDOL. [Suspect]
     Active Substance: DROPERIDOL
     Dosage: UNK
     Route: 042
     Dates: start: 20151222, end: 20151222
  13. IOMERON [Suspect]
     Active Substance: IOMEPROL
     Dosage: 400 5400 MG IODINE/ ML
     Route: 042
     Dates: start: 20151222, end: 20151222
  14. DALACINE [Suspect]
     Active Substance: CLINDAMYCIN HYDROCHLORIDE
     Dosage: UNK
     Route: 048
     Dates: start: 20151222, end: 20151222
  15. SUFENTANIL [Suspect]
     Active Substance: SUFENTANIL
  16. DAFALGAN CODEINE [Concomitant]
     Active Substance: ACETAMINOPHEN\CODEINE PHOSPHATE
  17. OMEPRAZOLE. [Concomitant]
     Active Substance: OMEPRAZOLE
  18. CHONDROSULF [Concomitant]
     Active Substance: CHONDROITIN SULFATE (CHICKEN)

REACTIONS (1)
  - Dermatitis bullous [Recovered/Resolved]

NARRATIVE: CASE EVENT DATE: 20151225
